FAERS Safety Report 17388102 (Version 1)
Quarter: 2020Q1

REPORT INFORMATION
  Report Type: Report from Study
  Country: US (occurrence: US)
  Receive Date: 20200206
  Receipt Date: 20200206
  Transmission Date: 20200409
  Serious: Yes (Hospitalization)
  Sender: FDA-Public Use
  Company Number: NVSC2020US031069

PATIENT
  Age: 32 Year
  Sex: Male
  Weight: 71.6 kg

DRUGS (25)
  1. ACETAMINOPHEN. [Concomitant]
     Active Substance: ACETAMINOPHEN
     Indication: ANALGESIC THERAPY
     Dosage: 4 DOSAGE FORM, Q4H ,PRN
     Route: 048
     Dates: start: 20191216, end: 20200102
  2. OMEPRAZOLE. [Concomitant]
     Active Substance: OMEPRAZOLE
     Indication: PANCREATIC FAILURE
     Dosage: 4 DF, BID
     Route: 048
     Dates: start: 20080613, end: 20200102
  3. ORKAMBI [Concomitant]
     Active Substance: IVACAFTOR\LUMACAFTOR
     Indication: CYSTIC FIBROSIS LUNG
     Dosage: 2 DF, BID
     Route: 048
     Dates: start: 20190624, end: 20200102
  4. RANITIDINE. [Concomitant]
     Active Substance: RANITIDINE
     Indication: PANCREATIC FAILURE
     Dosage: 4 DF HS
     Route: 048
     Dates: start: 20080613, end: 20200102
  5. FLUTICASONE. [Concomitant]
     Active Substance: FLUTICASONE
     Indication: CYSTIC FIBROSIS LUNG
     Dosage: 4 PUFF INHALED, BID
     Route: 065
     Dates: start: 20191216
  6. MIRALAX [Concomitant]
     Active Substance: POLYETHYLENE GLYCOL 3350
     Indication: CONSTIPATION
     Dosage: 176 MILLILITER, QD
     Route: 065
     Dates: start: 20130108, end: 20200102
  7. NOVOLOG [Concomitant]
     Active Substance: INSULIN ASPART
     Indication: CYSTIC FIBROSIS RELATED DIABETES
     Dosage: 4 UNITS AT BREAKFAST
     Route: 058
     Dates: start: 20180624, end: 20200102
  8. PULMOSAL [Concomitant]
     Active Substance: SODIUM CHLORIDE
     Indication: CYSTIC FIBROSIS LUNG
     Dosage: 4 VIAL INHALED
     Route: 065
     Dates: start: 20170829
  9. TOBRAMYCIN. [Suspect]
     Active Substance: TOBRAMYCIN
     Indication: ABDOMINAL PAIN
     Dosage: UNK
     Route: 065
  10. ALBUTEROL. [Concomitant]
     Active Substance: ALBUTEROL
     Indication: CYSTIC FIBROSIS LUNG
     Dosage: 3 MILLILITER, TID, INHALED
     Route: 065
     Dates: start: 20020613
  11. PULMOSAL [Concomitant]
     Active Substance: SODIUM CHLORIDE
     Dosage: 4 VIAL INHALED
     Route: 065
     Dates: start: 20080709
  12. VITAMIN A [Concomitant]
     Active Substance: VITAMIN A
     Indication: PANCREATIC FAILURE
     Dosage: 4 DF, QD
     Route: 048
     Dates: start: 20110613, end: 20200102
  13. ADVAIR HFA [Concomitant]
     Active Substance: FLUTICASONE PROPIONATE\SALMETEROL XINAFOATE
     Indication: CYSTIC FIBROSIS LUNG
     Dosage: 1 PUFF INHALED, BID
     Route: 065
     Dates: start: 20080613, end: 20200102
  14. FLUTICASONE. [Concomitant]
     Active Substance: FLUTICASONE
     Indication: CYSTIC FIBROSIS LUNG
     Dosage: 2 SPRAY , QD
     Route: 065
     Dates: start: 20080613
  15. ALBUTEROL. [Concomitant]
     Active Substance: ALBUTEROL
     Dosage: 3 PUFF, QID
     Route: 065
     Dates: start: 20080613
  16. CAYSTON [Concomitant]
     Active Substance: AZTREONAM
     Indication: CYSTIC FIBROSIS LUNG
     Dosage: 75 MG, TID
     Route: 065
     Dates: start: 20200101, end: 20200102
  17. CREON [Concomitant]
     Active Substance: PANCRELIPASE AMYLASE\PANCRELIPASE LIPASE\PANCRELIPASE PROTEASE
     Indication: PANCREATIC FAILURE
     Dosage: 6 DF, TID
     Route: 048
     Dates: start: 20080613, end: 20200102
  18. INSULIN ASPART [Concomitant]
     Active Substance: INSULIN ASPART
     Indication: CYSTIC FIBROSIS LUNG
     Dosage: UNK UNK, TID
     Route: 058
     Dates: start: 20180724
  19. NOVOLOG [Concomitant]
     Active Substance: INSULIN ASPART
     Dosage: 8 UNITS AT BREAKFAST
     Route: 058
     Dates: start: 20180624
  20. AZITHROMYCIN ANHYDROUS. [Concomitant]
     Active Substance: AZITHROMYCIN ANHYDROUS
     Indication: CYSTIC FIBROSIS LUNG
     Dosage: 1 DF, QOD
     Route: 048
     Dates: start: 20080613, end: 20200102
  21. CREON [Concomitant]
     Active Substance: PANCRELIPASE AMYLASE\PANCRELIPASE LIPASE\PANCRELIPASE PROTEASE
     Dosage: 8 DOSAGE FORM, 6XD WITH SNACKS
     Route: 048
     Dates: start: 20080613, end: 20200102
  22. NOVOLOG [Concomitant]
     Active Substance: INSULIN ASPART
     Dosage: 6 UNITS AT BREAKFAST
     Route: 058
     Dates: start: 20180624, end: 20200102
  23. LANTUS [Concomitant]
     Active Substance: INSULIN GLARGINE
     Indication: CYSTIC FIBROSIS RELATED DIABETES
     Dosage: 10 UNITS , QD
     Route: 058
     Dates: start: 20180724
  24. PHYTONADIONE. [Concomitant]
     Active Substance: PHYTONADIONE
     Indication: PANCREATIC FAILURE
     Dosage: 4 DF, QID
     Route: 048
     Dates: start: 20151013, end: 20200102
  25. VITAMIN D2 [Concomitant]
     Active Substance: ERGOCALCIFEROL
     Indication: PANCREATIC FAILURE
     Dosage: 4 DF, QOD
     Route: 048
     Dates: start: 20110613, end: 20200102

REACTIONS (2)
  - Abdominal pain [Recovered/Resolved]
  - Pyrexia [Recovered/Resolved]

NARRATIVE: CASE EVENT DATE: 20200102
